FAERS Safety Report 6159395-3 (Version None)
Quarter: 2009Q2

REPORT INFORMATION
  Report Type: 
  Country: None (occurrence: None)
  Receive Date: 20090417
  Receipt Date: 20090408
  Transmission Date: 20091009
  Serious: Yes (Other)
  Sender: FDA-Public Use
  Company Number: BR-ABBOTT-09P-020-0567494-00

PATIENT
  Sex: Male

DRUGS (2)
  1. HUMIRA [Suspect]
     Indication: RHEUMATOID ARTHRITIS
     Route: 058
     Dates: start: 20081001, end: 20090106
  2. UNKNOWN THERAPY [Concomitant]
     Indication: BLOOD PRESSURE

REACTIONS (2)
  - DISLOCATION OF JOINT PROSTHESIS [None]
  - FALL [None]
